FAERS Safety Report 25886919 (Version 1)
Quarter: 2025Q4

REPORT INFORMATION
  Report Type: Spontaneous
  Country: EU (occurrence: EU)
  Receive Date: 20251006
  Receipt Date: 20251006
  Transmission Date: 20260117
  Serious: Yes (Other)
  Sender: VERTEX
  Company Number: None

PATIENT
  Age: 7 Year
  Sex: Male
  Weight: 28 kg

DRUGS (5)
  1. ELEXACAFTOR\IVACAFTOR\TEZACAFTOR [Suspect]
     Active Substance: ELEXACAFTOR\IVACAFTOR\TEZACAFTOR
     Indication: Cystic fibrosis
     Dosage: 2 DOSAGE FORM PER DAY (37.5 MG IVA/ 25 MG TEZA/ 50 MG ELEXA)
     Route: 048
     Dates: start: 20231015
  2. KALYDECO [Suspect]
     Active Substance: IVACAFTOR
     Indication: Cystic fibrosis
     Dosage: 1 PER DAY (75 MG IVA)
     Route: 048
     Dates: start: 20231015
  3. AZITHROMYCIN [Suspect]
     Active Substance: AZITHROMYCIN
     Indication: Cystic fibrosis
     Dosage: 250 MG X THREE TIMES A WEEK
     Route: 048
     Dates: start: 20230615, end: 202407
  4. AZITHROMYCIN [Suspect]
     Active Substance: AZITHROMYCIN
     Dosage: 250 MG X THREE TIMES A WEEK
     Route: 048
     Dates: end: 202408
  5. AZITHROMYCIN [Suspect]
     Active Substance: AZITHROMYCIN
     Dosage: 250 MG X THREE TIMES A WEEK
     Route: 048
     Dates: start: 202409

REACTIONS (2)
  - Neutropenia [Not Recovered/Not Resolved]
  - Neuropsychological symptoms [Not Recovered/Not Resolved]

NARRATIVE: CASE EVENT DATE: 20231127
